FAERS Safety Report 4939343-1 (Version None)
Quarter: 2006Q1

REPORT INFORMATION
  Report Type: 
  Country: None (occurrence: None)
  Receive Date: 20060306
  Receipt Date: 20060216
  Transmission Date: 20060701
  Serious: Yes (Hospitalization)
  Sender: FDA-Public Use
  Company Number: JP_050406435

PATIENT
  Age: 58 Year
  Sex: Female

DRUGS (2)
  1. ZYPREXA [Suspect]
     Indication: PSYCHOTIC DISORDER
     Dosage: 20 MG, DAILY (1/D), ORAL
     Route: 048
  2. PAROXETINE HCL [Concomitant]

REACTIONS (20)
  - AGITATION [None]
  - AKINESIA [None]
  - AMNESIA [None]
  - ANXIETY [None]
  - APATHY [None]
  - DECREASED APPETITE [None]
  - DISORIENTATION [None]
  - EUPHORIC MOOD [None]
  - EXCITABILITY [None]
  - FALL [None]
  - FEELING GUILTY [None]
  - HUMERUS FRACTURE [None]
  - INSOMNIA [None]
  - LOGORRHOEA [None]
  - MUTISM [None]
  - PERSONALITY DISORDER [None]
  - REFUSAL OF TREATMENT BY PATIENT [None]
  - RESTLESSNESS [None]
  - SUICIDE ATTEMPT [None]
  - THINKING ABNORMAL [None]
